FAERS Safety Report 5134455-4 (Version None)
Quarter: 2006Q4

REPORT INFORMATION
  Report Type: 
  Country: None (occurrence: None)
  Receive Date: 20061023
  Receipt Date: 20061023
  Transmission Date: 20070319
  Serious: Yes (Hospitalization)
  Sender: FDA-Public Use
  Company Number: None

PATIENT
  Age: 66 Year
  Sex: Female
  Weight: 74.8 kg

DRUGS (8)
  1. ALEVE [Suspect]
     Indication: ARTHRALGIA
     Dosage: 440MG (2 X 220MG) ONCE ORAL
     Route: 048
     Dates: start: 20061014
  2. ALEVE [Suspect]
     Indication: HEADACHE
     Dosage: 440MG (2 X 220MG) ONCE ORAL
     Route: 048
     Dates: start: 20061014
  3. CELEBREX [Concomitant]
  4. EFFEXOR XR [Concomitant]
  5. FOSAMAX [Concomitant]
  6. MULTI-VITAMIN [Concomitant]
  7. CALCIUM WITH VITAMIN D [Concomitant]
  8. GLUCOSAMINE SUPPLEMENT [Concomitant]

REACTIONS (1)
  - STEVENS-JOHNSON SYNDROME [None]
